FAERS Safety Report 17783165 (Version 2)
Quarter: 2020Q2

REPORT INFORMATION
  Report Type: Report from Study
  Country: AU (occurrence: AU)
  Receive Date: 20200513
  Receipt Date: 20200611
  Transmission Date: 20200714
  Serious: Yes (Other)
  Sender: FDA-Public Use
  Company Number: NVSC2020AU052415

PATIENT
  Age: 51 Year
  Sex: Female
  Weight: 98.3 kg

DRUGS (19)
  1. SODIUM CHLORIDE. [Concomitant]
     Active Substance: SODIUM CHLORIDE
     Indication: PRODUCT USED FOR UNKNOWN INDICATION
     Dosage: 7 MG
     Route: 065
  2. LETROZOLE. [Suspect]
     Active Substance: LETROZOLE
     Dosage: 2.5 MG, QD
     Route: 048
     Dates: start: 20200320
  3. OXYBUTYNIN. [Concomitant]
     Active Substance: OXYBUTYNIN CHLORIDE
     Indication: HOT FLUSH
     Dosage: 5 MG, BID
     Route: 048
     Dates: start: 20191021, end: 20191215
  4. POLARAMINE [Concomitant]
     Active Substance: DEXCHLORPHENIRAMINE MALEATE
     Indication: HYPERSENSITIVITY
     Dosage: 2 MG, PRN
     Route: 048
     Dates: start: 20191215
  5. IBILEX [Concomitant]
     Active Substance: CEPHALEXIN
     Indication: MASTITIS
     Dosage: 500 MG, QD
     Route: 048
     Dates: start: 20200102, end: 20200112
  6. GABAPENTIN. [Concomitant]
     Active Substance: GABAPENTIN
     Indication: HOT FLUSH
     Dosage: 300 MG, TID
     Route: 048
     Dates: start: 20200124, end: 20200210
  7. POTASSIUM CHLORIDE. [Concomitant]
     Active Substance: POTASSIUM CHLORIDE
     Indication: PRODUCT USED FOR UNKNOWN INDICATION
     Dosage: 6 MG
     Route: 065
  8. LEE011 [Suspect]
     Active Substance: RIBOCICLIB
     Indication: BREAST CANCER
     Dosage: 400 MG
     Route: 048
     Dates: start: 20191129, end: 20200124
  9. CALCIUM CARBONATE. [Concomitant]
     Active Substance: CALCIUM CARBONATE
     Indication: SUPPLEMENTATION THERAPY
     Dosage: 600 MG, BID
     Route: 048
     Dates: start: 20191125, end: 20191127
  10. MACROGOL [Concomitant]
     Active Substance: POLYETHYLENE GLYCOLS
     Indication: PROPHYLAXIS
     Dosage: 1 PRN
     Route: 048
     Dates: start: 20191206, end: 20191206
  11. OXYBUTYNIN. [Concomitant]
     Active Substance: OXYBUTYNIN CHLORIDE
     Dosage: 2.5 MG, BID
     Route: 048
     Dates: start: 20191223, end: 20200107
  12. SODIUM BICARBONATE. [Concomitant]
     Active Substance: SODIUM BICARBONATE
     Indication: PRODUCT USED FOR UNKNOWN INDICATION
     Dosage: 5 MG
     Route: 065
  13. OXYBUTYNIN. [Concomitant]
     Active Substance: OXYBUTYNIN CHLORIDE
     Dosage: 2.5 MG, BID
     Route: 048
     Dates: start: 20191216, end: 20191217
  14. KWELLS [Concomitant]
     Active Substance: SCOPOLAMINE HYDROBROMIDE
     Dosage: PRN
     Route: 048
     Dates: start: 20200116, end: 20200116
  15. LETROZOLE. [Suspect]
     Active Substance: LETROZOLE
     Indication: BREAST CANCER
     Dosage: 2.5 MG
     Route: 048
     Dates: start: 20191031, end: 20200210
  16. HYOSCINE HYDROBROMIDE [Concomitant]
     Active Substance: SCOPOLAMINE HYDROBROMIDE
     Indication: PROPHYLAXIS
     Dosage: 300 MG, PRN
     Route: 048
     Dates: start: 20200107, end: 20200116
  17. FLUVAX [Concomitant]
     Active Substance: INFLUENZA VIRUS VACCINE
     Indication: PROPHYLAXIS
     Dosage: 1 ML, STAT
     Route: 030
     Dates: start: 20200408, end: 20200408
  18. POLARAMINE [Concomitant]
     Active Substance: DEXCHLORPHENIRAMINE MALEATE
     Indication: PRURITUS
  19. KWELLS [Concomitant]
     Active Substance: SCOPOLAMINE HYDROBROMIDE
     Indication: PROPHYLAXIS
     Dosage: PRN
     Route: 048
     Dates: start: 20200109, end: 20200109

REACTIONS (1)
  - Drug-induced liver injury [Recovered/Resolved]

NARRATIVE: CASE EVENT DATE: 20200221
